FAERS Safety Report 5060004-5 (Version None)
Quarter: 2006Q3

REPORT INFORMATION
  Report Type: 
  Country: None (occurrence: None)
  Receive Date: 20060719
  Receipt Date: 20060710
  Transmission Date: 20061208
  Serious: Yes (Death)
  Sender: FDA-Public Use
  Company Number: 2006JP001914

PATIENT
  Age: 55 Year
  Sex: Male
  Weight: 44 kg

DRUGS (10)
  1. FUNGUARD(MICAFUNGIN) INJECTION [Suspect]
     Indication: BRONCHOPULMONARY ASPERGILLOSIS
     Dosage: IV DRIP
     Route: 041
     Dates: start: 20050101
  2. LASIX [Concomitant]
  3. ALDACTONE [Concomitant]
  4. SOLDACTONE (POTASSIUM CANRENOATE) [Concomitant]
  5. AMARYL [Concomitant]
  6. GASTER D OROSIDPERSABLE [Concomitant]
  7. BASEN (VOGLIBOSE) [Concomitant]
  8. LIVACT (AMINO ACIDS NOS) [Concomitant]
  9. URSO (UROSDEOXYCHOLIC ACID) [Concomitant]
  10. SELBEX (TEPRENONE) [Concomitant]

REACTIONS (13)
  - BLOOD GLUCOSE INCREASED [None]
  - BLOOD PRESSURE DECREASED [None]
  - BRONCHOPULMONARY ASPERGILLOSIS [None]
  - CONDITION AGGRAVATED [None]
  - DEPRESSED LEVEL OF CONSCIOUSNESS [None]
  - DIABETES MELLITUS [None]
  - DYSPHORIA [None]
  - HEPATIC FAILURE [None]
  - MELAENA [None]
  - NAUSEA [None]
  - PYREXIA [None]
  - UPPER GASTROINTESTINAL HAEMORRHAGE [None]
  - VARICOSE VEIN [None]
